FAERS Safety Report 8385691-5 (Version None)
Quarter: 2012Q2

REPORT INFORMATION
  Report Type: 
  Country: None (occurrence: None)
  Receive Date: 20120523
  Receipt Date: 20120516
  Transmission Date: 20120825
  Serious: Yes (Death, Hospitalization)
  Sender: FDA-Public Use
  Company Number: GER/FRA/12/0024362

PATIENT
  Age: 60 Year
  Sex: Male

DRUGS (1)
  1. CLOPIDEGREL [Suspect]
     Indication: CORONARY ARTERY STENOSIS

REACTIONS (6)
  - AORTIC VALVE DISEASE [None]
  - AORTIC THROMBOSIS [None]
  - MULTI-ORGAN FAILURE [None]
  - CATHETER SITE HAEMORRHAGE [None]
  - LEFT VENTRICULAR DYSFUNCTION [None]
  - DISSEMINATED INTRAVASCULAR COAGULATION [None]
